FAERS Safety Report 8739735 (Version 2)
Quarter: 2013Q3

REPORT INFORMATION
  Report Type: Spontaneous
  Country: JP (occurrence: None)
  Receive Date: 20120807
  Receipt Date: 20130814
  Transmission Date: 20140515
  Serious: Yes (Hospitalization, Other)
  Sender: FDA-Public Use
  Company Number: AXC-2012-000336

PATIENT
  Age: 21 Year
  Sex: Male

DRUGS (5)
  1. URSODIOL [Suspect]
     Indication: PRODUCT USED FOR UNKNOWN INDICATION
     Dosage: UNK, ORAL
     Route: 048
  2. ALLOPURINOL [Suspect]
     Indication: PRODUCT USED FOR UNKNOWN INDICATION
     Dosage: UNK, ORAL
     Route: 048
  3. ATORVASTATIN CALCIUM [Suspect]
     Indication: PRODUCT USED FOR UNKNOWN INDICATION
     Dosage: ORAL
     Route: 048
  4. IMMUNOGLOBULIN [Suspect]
     Indication: PRODUCT USED FOR UNKNOWN INDICATION
     Route: 041
  5. SESDEN (TIMEPIDIUM BROMIDE) [Concomitant]

REACTIONS (6)
  - Drug reaction with eosinophilia and systemic symptoms [None]
  - Anaphylactic shock [None]
  - Oropharyngeal pain [None]
  - Hepatic function abnormal [None]
  - Influenza A virus test positive [None]
  - Pneumonia influenzal [None]
